FAERS Safety Report 8403428-8 (Version None)
Quarter: 2012Q2

REPORT INFORMATION
  Report Type: 
  Country: None (occurrence: None)
  Receive Date: 20120601
  Receipt Date: 20120528
  Transmission Date: 20120825
  Serious: Yes (Other)
  Sender: FDA-Public Use
  Company Number: PHHY2012MX046757

PATIENT
  Sex: Female

DRUGS (4)
  1. EXFORGE [Suspect]
     Indication: HYPERTENSION
     Dosage: 1 DF (160/5 MG), DAILY
  2. VYTORIN [Concomitant]
     Dosage: UNK UKN, UNK
  3. LIPITOR [Concomitant]
     Dosage: 1 DF, DAILY
  4. BEZAFIBRATE [Concomitant]
     Dosage: 1 DF, DAILY

REACTIONS (3)
  - DIZZINESS [None]
  - HYPERTENSION [None]
  - CATARACT [None]
